FAERS Safety Report 6094805-1 (Version None)
Quarter: 2009Q1

REPORT INFORMATION
  Report Type: 
  Country: None (occurrence: None)
  Receive Date: 20090226
  Receipt Date: 20090213
  Transmission Date: 20090719
  Serious: Yes (Hospitalization)
  Sender: FDA-Public Use
  Company Number: FR-ELI_LILLY_AND_COMPANY-FR200902003923

PATIENT
  Age: 51 Year
  Sex: Male
  Weight: 90 kg

DRUGS (7)
  1. PEMETREXED [Suspect]
     Indication: LUNG NEOPLASM MALIGNANT
     Dosage: 500 MG/M2 (ACTUAL DOSE 1000MG), OTHER
     Route: 042
     Dates: start: 20071120, end: 20080108
  2. FOLIC ACID [Concomitant]
     Indication: VITAMIN SUPPLEMENTATION
  3. VITAMIN B-12 [Concomitant]
     Indication: VITAMIN SUPPLEMENTATION
  4. CORTICOSTEROIDS [Concomitant]
     Indication: PROPHYLAXIS
  5. POLARAMINE [Concomitant]
     Indication: HYPERSENSITIVITY
     Dosage: 5 MG ON DAY 1
     Route: 048
  6. ZOPHREN [Concomitant]
     Indication: VOMITING
     Dosage: 8 MG ON DAY 1
     Route: 042
  7. NEULASTA [Concomitant]
     Indication: APLASIA
     Dosage: 6 MG ON DAY 1
     Route: 058

REACTIONS (1)
  - TOXIC SKIN ERUPTION [None]
